FAERS Safety Report 8278201 (Version 4)
Quarter: 2012Q4

REPORT INFORMATION
  Report Type: 
  Country: JP (occurrence: JP)
  Receive Date: 20111207
  Receipt Date: 20120926
  Transmission Date: 20130627
  Serious: Yes (Other)
  Sender: FDA-Public Use
  Company Number: PHHY2011JP106222

PATIENT
  Age: 65 Year
  Sex: Female

DRUGS (2)
  1. ZOMETA [Suspect]
     Indication: METASTASES TO BONE
     Dosage: 4 mg,
     Route: 041
     Dates: start: 20060705
  2. FARESTON [Concomitant]
     Dosage: 120 mg, UNK
     Route: 048
     Dates: start: 20060301

REACTIONS (8)
  - Osteonecrosis of jaw [Not Recovered/Not Resolved]
  - Osteomyelitis [Not Recovered/Not Resolved]
  - Pulpitis dental [Recovering/Resolving]
  - Periodontitis [Recovering/Resolving]
  - Pain [Unknown]
  - Gingival infection [Unknown]
  - Lymph node pain [Unknown]
  - Bone lesion [Unknown]
